FAERS Safety Report 24156617 (Version 1)
Quarter: 2024Q3

REPORT INFORMATION
  Report Type: Spontaneous
  Country: US (occurrence: None)
  Receive Date: 20240730
  Receipt Date: 20240730
  Transmission Date: 20241016
  Serious: No
  Sender: Public
  Company Number: None

PATIENT
  Age: 76 Year
  Sex: Female
  Weight: 101.7 kg

DRUGS (1)
  1. SPRYCEL [Suspect]
     Active Substance: DASATINIB
     Indication: Chronic myeloid leukaemia
     Dosage: FREQUENCY : DAILY;?
     Route: 048

REACTIONS (2)
  - Product dispensing error [None]
  - Incorrect dose administered [None]

NARRATIVE: CASE EVENT DATE: 20240717
